FAERS Safety Report 21004211 (Version 2)
Quarter: 2022Q2

REPORT INFORMATION
  Report Type: Spontaneous
  Country: US (occurrence: US)
  Receive Date: 20220624
  Receipt Date: 20220628
  Transmission Date: 20220721
  Serious: No
  Sender: FDA-Public Use
  Company Number: US-INSUD PHARMA-2206US02359

PATIENT

DRUGS (3)
  1. SLYND [Suspect]
     Active Substance: DROSPIRENONE
     Indication: Product used for unknown indication
     Dosage: ONE PILL, AT SCHEDULED TIME OF 8 PM
     Route: 048
     Dates: start: 20220610, end: 20220611
  2. SLYND [Suspect]
     Active Substance: DROSPIRENONE
     Dosage: DID NOT TAKE DOSE ON 12-JUN-2022
     Dates: start: 20220612
  3. ADVIL [Suspect]
     Active Substance: IBUPROFEN
     Indication: Product used for unknown indication
     Dosage: SINGLE DOSE
     Route: 065
     Dates: start: 20220611, end: 20220611

REACTIONS (1)
  - Paraesthesia [Recovered/Resolved]

NARRATIVE: CASE EVENT DATE: 20220611
